FAERS Safety Report 23001469 (Version 2)
Quarter: 2023Q4

REPORT INFORMATION
  Report Type: Spontaneous
  Country: US (occurrence: US)
  Receive Date: 20230928
  Receipt Date: 20231109
  Transmission Date: 20240110
  Serious: Yes (Hospitalization, Other)
  Sender: FDA-Public Use
  Company Number: US-BRISTOL-MYERS SQUIBB COMPANY-2023-137684

PATIENT
  Age: 70 Year
  Sex: Female
  Weight: 70.31 kg

DRUGS (5)
  1. REVLIMID [Suspect]
     Active Substance: LENALIDOMIDE
     Indication: Plasma cell myeloma
     Dosage: 25 MG ONCE DAILY FOR 21 DAYS
     Route: 048
     Dates: start: 20230919
  2. REVLIMID [Suspect]
     Active Substance: LENALIDOMIDE
     Dosage: FREQUENCY: ONCE EVERY OTHER DAY
     Route: 048
  3. ACETAMINOPHEN\DIPHENHYDRAMINE\PHENYLPROPANOLAMINE [Suspect]
     Active Substance: ACETAMINOPHEN\DIPHENHYDRAMINE\PHENYLPROPANOLAMINE
     Indication: Product used for unknown indication
  4. LEVOTHYROXINE [Concomitant]
     Active Substance: LEVOTHYROXINE
     Indication: Product used for unknown indication
  5. SUMATRIPTAN [Concomitant]
     Active Substance: SUMATRIPTAN
     Indication: Product used for unknown indication
     Dosage: PRN

REACTIONS (12)
  - Rash [Unknown]
  - Dizziness [Unknown]
  - Vision blurred [Unknown]
  - Somnolence [Unknown]
  - Constipation [Unknown]
  - Fall [Unknown]
  - Neuropathy peripheral [Unknown]
  - Anaphylactic shock [Unknown]
  - Off label use [Unknown]
  - Swelling face [Unknown]
  - Pharyngeal swelling [Unknown]
  - Drug hypersensitivity [Unknown]

NARRATIVE: CASE EVENT DATE: 20230901
